FAERS Safety Report 8393598-2 (Version None)
Quarter: 2012Q2

REPORT INFORMATION
  Report Type: 
  Country: None (occurrence: None)
  Receive Date: 20120530
  Receipt Date: 20120516
  Transmission Date: 20120825
  Serious: Yes (Death, Hospitalization, Other)
  Sender: FDA-Public Use
  Company Number: CI-RANBAXY-2012RR-55992

PATIENT
  Age: 80 Year
  Sex: Male

DRUGS (2)
  1. SIMVASTATIN [Suspect]
     Indication: HYPERCHOLESTEROLAEMIA
     Dosage: 20 MG, DAILY
     Route: 065
  2. DILTIAZEM [Suspect]
     Indication: HYPERTENSION
     Dosage: 300 MG, DAILY
     Route: 065

REACTIONS (1)
  - CHYLOTHORAX [None]
